FAERS Safety Report 19022524 (Version 2)
Quarter: 2021Q2

REPORT INFORMATION
  Report Type: Report from Study
  Country: None (occurrence: US)
  Receive Date: 20210318
  Receipt Date: 20210403
  Transmission Date: 20210717
  Serious: Yes (Hospitalization, Other)
  Sender: FDA-Public Use
  Company Number: US-ABBVIE-20K-163-3424326-00

PATIENT
  Age: 34 Year
  Sex: Female
  Weight: 81.27 kg

DRUGS (9)
  1. HUMIRA [Suspect]
     Active Substance: ADALIMUMAB
     Route: 058
     Dates: start: 2011, end: 2019
  2. PREDNISONE. [Concomitant]
     Active Substance: PREDNISONE
     Indication: RHEUMATOID ARTHRITIS
     Route: 065
  3. HUMIRA [Suspect]
     Active Substance: ADALIMUMAB
     Route: 058
     Dates: start: 2001, end: 2008
  4. BUTALBITAL AND ACETAMINOPHEN [Concomitant]
     Active Substance: ACETAMINOPHEN\BUTALBITAL
     Indication: HEADACHE
  5. METHOTREXATE. [Concomitant]
     Active Substance: METHOTREXATE
     Indication: RHEUMATOID ARTHRITIS
     Route: 065
  6. BUTALBITAL AND ACETAMINOPHEN [Concomitant]
     Active Substance: ACETAMINOPHEN\BUTALBITAL
     Indication: MIGRAINE
     Route: 065
  7. HUMIRA [Suspect]
     Active Substance: ADALIMUMAB
     Indication: RHEUMATOID ARTHRITIS
     Route: 058
     Dates: start: 2000, end: 2001
  8. HUMIRA [Suspect]
     Active Substance: ADALIMUMAB
     Route: 058
     Dates: start: 2010, end: 2011
  9. VITAMIN D [Concomitant]
     Active Substance: VITAMIN D NOS
     Indication: VITAMIN D DEFICIENCY
     Route: 065

REACTIONS (20)
  - Mycobacterium tuberculosis complex test positive [Recovered/Resolved]
  - Osteoporosis [Not Recovered/Not Resolved]
  - Obesity [Not Recovered/Not Resolved]
  - Synovial cyst [Not Recovered/Not Resolved]
  - Premature rupture of membranes [Recovered/Resolved]
  - Maternal exposure during pregnancy [Unknown]
  - Chest pain [Not Recovered/Not Resolved]
  - Tricuspid valve incompetence [Not Recovered/Not Resolved]
  - Pulmonary hypertension [Not Recovered/Not Resolved]
  - Cardiac murmur [Not Recovered/Not Resolved]
  - Gastric disorder [Recovered/Resolved]
  - Neck pain [Not Recovered/Not Resolved]
  - Spinal osteoarthritis [Not Recovered/Not Resolved]
  - Haemorrhage [Recovered/Resolved]
  - Latent tuberculosis [Recovering/Resolving]
  - Oedema peripheral [Not Recovered/Not Resolved]
  - Hypertension [Not Recovered/Not Resolved]
  - Bursitis [Not Recovered/Not Resolved]
  - Cervical radiculopathy [Not Recovered/Not Resolved]
  - Asthma [Recovering/Resolving]

NARRATIVE: CASE EVENT DATE: 2000
